FAERS Safety Report 7579717-6 (Version None)
Quarter: 2011Q2

REPORT INFORMATION
  Report Type: 
  Country: None (occurrence: None)
  Receive Date: 20110629
  Receipt Date: 20110621
  Transmission Date: 20111010
  Serious: Yes (Hospitalization)
  Sender: FDA-Public Use
  Company Number: US-ASTELLAS-2011US003317

PATIENT
  Sex: Female
  Weight: 86 kg

DRUGS (6)
  1. ERLOTINIB HYDROCHLORIDE [Suspect]
     Indication: PANCREATIC CARCINOMA
     Dosage: 150 MG, UID/QD
     Route: 048
     Dates: start: 20110608, end: 20110613
  2. GEMCITABINE [Suspect]
     Indication: PANCREATIC CARCINOMA
     Dosage: 100 MG/M2 QOWK
     Route: 042
     Dates: start: 20110606, end: 20110606
  3. OXALIPLATIN [Suspect]
     Indication: PANCREATIC CARCINOMA
     Dosage: 85 MG/M2, QOWK
     Route: 042
     Dates: start: 20110607, end: 20110607
  4. ERLOTINIB HYDROCHLORIDE [Suspect]
     Indication: BILE DUCT CANCER
  5. OXALIPLATIN [Suspect]
     Indication: BILE DUCT CANCER
  6. GEMCITABINE [Suspect]
     Indication: BILE DUCT CANCER

REACTIONS (2)
  - DISEASE PROGRESSION [None]
  - ANAEMIA [None]
